FAERS Safety Report 4423584-6 (Version None)
Quarter: 2004Q3

REPORT INFORMATION
  Report Type: 
  Country: None (occurrence: None)
  Receive Date: 20040805
  Receipt Date: 20040721
  Transmission Date: 20050211
  Serious: Yes (Disabling)
  Sender: FDA-Public Use
  Company Number: 04P-161-0267899-00

PATIENT
  Age: 30 Year
  Sex: Female

DRUGS (1)
  1. DEPAKENE [Suspect]
     Indication: EPILEPSY
     Dosage: 500 MG, 1 IN 1 D, ORAL
     Route: 048

REACTIONS (15)
  - ACNE [None]
  - ANGINA PECTORIS [None]
  - CAESAREAN SECTION [None]
  - CHEST PAIN [None]
  - COMPLICATIONS OF MATERNAL EXPOSURE TO THERAPEUTIC DRUGS [None]
  - DEPRESSION [None]
  - FATIGUE [None]
  - HIRSUTISM [None]
  - HYPERTENSION [None]
  - PALPITATIONS [None]
  - POLYCYSTIC OVARIES [None]
  - PREGNANCY [None]
  - SOMNOLENCE [None]
  - UTERINE CYST [None]
  - WEIGHT INCREASED [None]
